FAERS Safety Report 5677728-9 (Version None)
Quarter: 2008Q1

REPORT INFORMATION
  Report Type: 
  Country: None (occurrence: None)
  Receive Date: 20080318
  Receipt Date: 20080305
  Transmission Date: 20080703
  Serious: Yes (Life-Threatening)
  Sender: FDA-Public Use
  Company Number: 100#08#2008-01420

PATIENT
  Age: 6 Year
  Sex: Male
  Weight: 20 kg

DRUGS (3)
  1. DESMOPRESSIN ACETATE [Suspect]
     Indication: ENURESIS
     Dosage: THREE BURSTS OF 10 UG INTO EACH NOSTRIL IN THE EVENING (60 UG/DAY) , 40 UG
     Route: 045
  2. DESMOPRESSIN ACETATE [Suspect]
     Indication: ENURESIS
     Dosage: THREE BURSTS OF 10 UG INTO EACH NOSTRIL IN THE EVENING (60 UG/DAY) , 40 UG
     Route: 045
  3. OXYBUTYNIN CHLORIDE [Concomitant]

REACTIONS (10)
  - ABDOMINAL PAIN [None]
  - AGITATION [None]
  - CLONIC CONVULSION [None]
  - COMA [None]
  - EYE ROLLING [None]
  - FACE OEDEMA [None]
  - HYPONATRAEMIC ENCEPHALOPATHY [None]
  - NASAL DISCOMFORT [None]
  - VOMITING [None]
  - WATER INTOXICATION [None]
